FAERS Safety Report 10203828 (Version 3)
Quarter: 2014Q3

REPORT INFORMATION
  Report Type: Spontaneous
  Country: US (occurrence: US)
  Receive Date: 20140529
  Receipt Date: 20140715
  Transmission Date: 20150326
  Serious: No
  Sender: FDA-Public Use
  Company Number: US-PFIZER INC-2014142578

PATIENT
  Age: 68 Year
  Sex: Female

DRUGS (1)
  1. SUTENT [Suspect]
     Active Substance: SUNITINIB MALATE
     Indication: CHOROID MELANOMA
     Dosage: 25 MG, DAILY
     Dates: start: 20131202, end: 201405

REACTIONS (12)
  - Hair colour changes [Unknown]
  - Alopecia [Unknown]
  - Blood count abnormal [Unknown]
  - Diarrhoea [Unknown]
  - Glossodynia [Unknown]
  - White blood cell count decreased [Unknown]
  - Eyelash discolouration [Unknown]
  - Oral pain [Unknown]
  - Off label use [Unknown]
  - Dysgeusia [Unknown]
  - Decreased appetite [Unknown]
  - Weight decreased [Unknown]
